FAERS Safety Report 9741812 (Version 2)
Quarter: 2013Q4

REPORT INFORMATION
  Report Type: Report from Study
  Country: CZ (occurrence: CZ)
  Receive Date: 20131210
  Receipt Date: 20131212
  Transmission Date: 20140711
  Serious: Yes (Death)
  Sender: FDA-Public Use
  Company Number: PHHY2013CZ142502

PATIENT
  Sex: Male

DRUGS (2)
  1. IMATINIB [Suspect]
     Dates: start: 20010807, end: 20060904
  2. AMN107 [Suspect]
     Dates: start: 20080919, end: 20090727

REACTIONS (3)
  - Diabetes mellitus [Fatal]
  - Ischaemia [Fatal]
  - Post procedural complication [Fatal]
